FAERS Safety Report 22303372 (Version 2)
Quarter: 2024Q1

REPORT INFORMATION
  Report Type: Report from Study
  Country: BR (occurrence: BR)
  Receive Date: 20230510
  Receipt Date: 20240311
  Transmission Date: 20240410
  Serious: Yes (Other)
  Sender: FDA-Public Use
  Company Number: BR-002147023-NVSC2023BR103454

PATIENT
  Sex: Male

DRUGS (1)
  1. KISQALI [Suspect]
     Active Substance: RIBOCICLIB
     Indication: Breast cancer male
     Dosage: UNK
     Route: 065

REACTIONS (4)
  - Breast haemorrhage [Unknown]
  - Axillary mass [Unknown]
  - Breast discharge [Recovered/Resolved]
  - Nodule [Unknown]
